FAERS Safety Report 23569744 (Version 1)
Quarter: 2024Q1

REPORT INFORMATION
  Report Type: Spontaneous
  Country: US (occurrence: US)
  Receive Date: 20240227
  Receipt Date: 20240227
  Transmission Date: 20240410
  Serious: Yes (Death)
  Sender: FDA-Public Use
  Company Number: US-MACLEODS PHARMACEUTICALS US LTD-MAC2024045993

PATIENT

DRUGS (3)
  1. LEVOFLOXACIN [Suspect]
     Active Substance: LEVOFLOXACIN
     Indication: Tularaemia
     Dosage: UNK (TIME INTERVAL BETWEEN BEGINNING OF DRUG ADMINISTRATION AND START OF EVENT: 2 MONTHS)
     Route: 048
  2. RITUXIMAB [Concomitant]
     Active Substance: RITUXIMAB
     Indication: Marginal zone lymphoma stage IV
     Dosage: UNK
     Route: 065
  3. RIFAMPIN [Concomitant]
     Active Substance: RIFAMPIN
     Indication: Tularaemia
     Dosage: UNK
     Route: 048

REACTIONS (2)
  - Marginal zone lymphoma stage IV [Fatal]
  - Arthralgia [Unknown]
